FAERS Safety Report 24668051 (Version 1)
Quarter: 2024Q4

REPORT INFORMATION
  Report Type: Spontaneous
  Country: FR (occurrence: FR)
  Receive Date: 20241127
  Receipt Date: 20241127
  Transmission Date: 20250115
  Serious: Yes (Life-Threatening, Other)
  Sender: CELLTRION
  Company Number: None

PATIENT

DRUGS (17)
  1. RITUXIMAB [Suspect]
     Active Substance: RITUXIMAB
     Indication: Follicular lymphoma
     Dosage: 375 MG/M2
     Route: 042
     Dates: start: 20220420, end: 20220420
  2. RITUXIMAB [Suspect]
     Active Substance: RITUXIMAB
     Dosage: 375 MG/M2
     Route: 042
     Dates: start: 20240319, end: 20240319
  3. RITUXIMAB [Suspect]
     Active Substance: RITUXIMAB
     Dosage: 375 MG/M2
     Route: 042
     Dates: start: 20240411, end: 20240411
  4. RITUXIMAB [Suspect]
     Active Substance: RITUXIMAB
     Dosage: 375 MG/M2
     Route: 042
     Dates: start: 20240502, end: 20240502
  5. CYCLOPHOSPHAMIDE [Suspect]
     Active Substance: CYCLOPHOSPHAMIDE
     Indication: Follicular lymphoma
     Dosage: 600 MG/M2
     Route: 042
     Dates: start: 20220420, end: 20220420
  6. CYCLOPHOSPHAMIDE [Suspect]
     Active Substance: CYCLOPHOSPHAMIDE
     Dosage: 600 MG/M2
     Route: 042
     Dates: start: 20240319, end: 20240319
  7. CYCLOPHOSPHAMIDE [Suspect]
     Active Substance: CYCLOPHOSPHAMIDE
     Dosage: 600 MG/M2
     Route: 042
     Dates: start: 20240411, end: 20240411
  8. CYCLOPHOSPHAMIDE [Suspect]
     Active Substance: CYCLOPHOSPHAMIDE
     Dosage: 600 MG/M2
     Route: 042
     Dates: start: 20240502, end: 20240502
  9. ETOPOSIDE [Suspect]
     Active Substance: ETOPOSIDE
     Indication: Follicular lymphoma
     Dosage: 100 MG/M2
     Route: 042
     Dates: start: 20220421, end: 20220421
  10. ETOPOSIDE [Suspect]
     Active Substance: ETOPOSIDE
     Dosage: 100 MG/M2
     Route: 042
     Dates: start: 20240319, end: 20240319
  11. ETOPOSIDE [Suspect]
     Active Substance: ETOPOSIDE
     Dosage: 100 MG/M2
     Route: 042
     Dates: start: 20240411, end: 20240411
  12. ETOPOSIDE [Suspect]
     Active Substance: ETOPOSIDE
     Dosage: 100 MG/M2
     Route: 042
     Dates: start: 20240502, end: 20240502
  13. PREDNISONE [Suspect]
     Active Substance: PREDNISONE
     Indication: Follicular lymphoma
     Dosage: 60 MG, EVERY 1 DAY
     Route: 042
     Dates: start: 20220421, end: 20220425
  14. PREDNISONE [Suspect]
     Active Substance: PREDNISONE
     Dosage: 60 MG, EVERY 1 DAY
     Route: 042
     Dates: start: 20240319, end: 20240323
  15. PREDNISONE [Suspect]
     Active Substance: PREDNISONE
     Dosage: 60 MG, EVERY 1 DAY
     Route: 042
     Dates: start: 20240411, end: 20240415
  16. PREDNISONE [Suspect]
     Active Substance: PREDNISONE
     Dosage: 60 MG, EVERY 1 DAY
     Route: 042
     Dates: start: 20240502, end: 20240506
  17. METHOTREXATE [Concomitant]
     Active Substance: METHOTREXATE
     Indication: Eczema
     Dosage: 15 MG, EVERY 1 WEEKS

REACTIONS (1)
  - Non-cardiogenic pulmonary oedema [Recovered/Resolved]

NARRATIVE: CASE EVENT DATE: 20240503
